FAERS Safety Report 14035224 (Version 2)
Quarter: 2018Q1

REPORT INFORMATION
  Report Type: Spontaneous
  Country: US (occurrence: US)
  Receive Date: 20171003
  Receipt Date: 20180209
  Transmission Date: 20180508
  Serious: No
  Sender: FDA-Public Use
  Company Number: US-PFIZER INC-2017419725

PATIENT
  Age: 51 Year
  Sex: Female
  Weight: 115.6 kg

DRUGS (24)
  1. L-LYSINE [Concomitant]
     Active Substance: LYSINE
     Dosage: UNK
  2. MAGNESIUM [Concomitant]
     Active Substance: MAGNESIUM
     Dosage: UNK
  3. GENOTROPIN [Suspect]
     Active Substance: SOMATROPIN
     Indication: HYPOPITUITARISM
     Dosage: 0.7 MG, DAILY
     Route: 058
     Dates: start: 201502
  4. GENOTROPIN [Suspect]
     Active Substance: SOMATROPIN
     Indication: EMPTY SELLA SYNDROME
  5. GENOTROPIN [Suspect]
     Active Substance: SOMATROPIN
     Indication: BLOOD GROWTH HORMONE
  6. IRON [Concomitant]
     Active Substance: IRON
     Dosage: UNK
  7. MINIVELLE [Concomitant]
     Active Substance: ESTRADIOL
     Dosage: UNK
  8. ZINC. [Concomitant]
     Active Substance: ZINC
     Dosage: UNK
  9. BIOTIN [Concomitant]
     Active Substance: BIOTIN
     Dosage: UNK
  10. LASIX [Concomitant]
     Active Substance: FUROSEMIDE
     Dosage: UNK
  11. LIOTHYRONINE [Concomitant]
     Active Substance: LIOTHYRONINE
     Dosage: UNK
  12. NORCO [Concomitant]
     Active Substance: ACETAMINOPHEN\HYDROCODONE BITARTRATE
     Dosage: UNK
  13. KLOR-CON [Concomitant]
     Active Substance: POTASSIUM CHLORIDE
     Dosage: UNK
  14. MVI [Concomitant]
     Active Substance: VITAMINS
     Dosage: UNK
  15. PROGESTERONE. [Concomitant]
     Active Substance: PROGESTERONE
     Dosage: UNK
  16. VITAMIN D3 [Concomitant]
     Active Substance: CHOLECALCIFEROL
     Dosage: UNK
  17. GENOTROPIN [Suspect]
     Active Substance: SOMATROPIN
     Indication: DWARFISM
  18. GENOTROPIN [Suspect]
     Active Substance: SOMATROPIN
     Indication: HYPOTHALAMO-PITUITARY DISORDER
  19. LYSINE [Concomitant]
     Active Substance: LYSINE
     Dosage: UNK
  20. PAXIL [Concomitant]
     Active Substance: PAROXETINE HYDROCHLORIDE
     Dosage: UNK
  21. VITAMIN B12 [Concomitant]
     Active Substance: CYANOCOBALAMIN
     Dosage: UNK
  22. ARMOUR THYROID [Concomitant]
     Active Substance: THYROID, PORCINE
     Dosage: UNK
  23. HYDROCORTISONE. [Concomitant]
     Active Substance: HYDROCORTISONE
     Dosage: UNK
  24. PRAMIPEXOLE. [Concomitant]
     Active Substance: PRAMIPEXOLE
     Dosage: UNK

REACTIONS (7)
  - Weight decreased [Unknown]
  - Neck pain [Unknown]
  - Skin ulcer [Unknown]
  - Pain in extremity [Unknown]
  - Hypoaesthesia [Unknown]
  - Skin laxity [Unknown]
  - Eye pain [Unknown]

NARRATIVE: CASE EVENT DATE: 2017
